FAERS Safety Report 6293467-8 (Version None)
Quarter: 2009Q3

REPORT INFORMATION
  Report Type: 
  Country: None (occurrence: None)
  Receive Date: 20090803
  Receipt Date: 20080423
  Transmission Date: 20100115
  Serious: Yes (Other)
  Sender: FDA-Public Use
  Company Number: US-ASTRAZENECA-2007UW15846

PATIENT
  Age: 26 Year
  Sex: Female
  Weight: 76.7 kg

DRUGS (18)
  1. SEROQUEL [Suspect]
     Indication: SCHIZOPHRENIA
     Route: 048
     Dates: start: 19990101, end: 20030123
  2. SEROQUEL [Suspect]
     Indication: BIPOLAR DISORDER
     Route: 048
     Dates: start: 19990101, end: 20030123
  3. SEROQUEL [Suspect]
     Indication: DEPRESSION
     Route: 048
     Dates: start: 19990101, end: 20030123
  4. SEROQUEL [Suspect]
     Route: 048
     Dates: start: 20020815
  5. SEROQUEL [Suspect]
     Route: 048
     Dates: start: 20020815
  6. SEROQUEL [Suspect]
     Route: 048
     Dates: start: 20020815
  7. HALDOL [Concomitant]
     Route: 048
     Dates: start: 20040101, end: 20070101
  8. RISPERDAL [Concomitant]
     Route: 048
  9. OLANZAPINE [Concomitant]
     Route: 048
  10. NAVANE [Concomitant]
     Route: 048
  11. ZOLOFT [Concomitant]
     Route: 048
     Dates: start: 20020815
  12. NEURONTIN [Concomitant]
     Route: 048
     Dates: start: 19990729
  13. WELLBUTRIN SR [Concomitant]
     Route: 048
     Dates: start: 20040324
  14. LEXAPRO [Concomitant]
     Route: 048
     Dates: start: 20040324
  15. DEPAKOTE [Concomitant]
     Route: 048
     Dates: start: 20031001
  16. LOXAPINE SUCCINATE [Concomitant]
     Route: 048
     Dates: start: 20030630
  17. GEODON [Concomitant]
     Route: 048
     Dates: start: 20060807
  18. LIPITOR [Concomitant]
     Route: 048
     Dates: start: 20061128

REACTIONS (5)
  - BLOOD CHOLESTEROL INCREASED [None]
  - FALL [None]
  - NEUROPATHY PERIPHERAL [None]
  - TYPE 1 DIABETES MELLITUS [None]
  - TYPE 2 DIABETES MELLITUS [None]
